FAERS Safety Report 8278638-3 (Version None)
Quarter: 2012Q2

REPORT INFORMATION
  Report Type: 
  Country: None (occurrence: None)
  Receive Date: 20120412
  Receipt Date: 20111216
  Transmission Date: 20120825
  Serious: No
  Sender: FDA-Public Use
  Company Number: US-ASTRAZENECA-2011SE52995

PATIENT
  Age: 55 Year
  Sex: Female
  Weight: 53.1 kg

DRUGS (1)
  1. NEXIUM [Suspect]
     Indication: OESOPHAGEAL DYSPLASIA
     Route: 048
     Dates: start: 20110201

REACTIONS (10)
  - PAIN [None]
  - DISCOMFORT [None]
  - MALAISE [None]
  - VOMITING [None]
  - WEIGHT DECREASED [None]
  - OFF LABEL USE [None]
  - DRUG DOSE OMISSION [None]
  - DYSPHAGIA [None]
  - APHAGIA [None]
  - OESOPHAGEAL PAIN [None]
